FAERS Safety Report 9198981 (Version 1)
Quarter: 2013Q1

REPORT INFORMATION
  Report Type: Spontaneous
  Country: US (occurrence: None)
  Receive Date: 20130325
  Receipt Date: 20130325
  Transmission Date: 20140127
  Serious: No
  Sender: FDA-Public Use
  Company Number: 2013US-004585

PATIENT
  Age: 51 Year
  Sex: Male
  Weight: 76 kg

DRUGS (14)
  1. OMONTYS (PEGINESATIDE) SOLUTION FOR INJECTION [Suspect]
     Indication: NEPHROGENIC ANAEMIA
     Route: 042
     Dates: start: 20130208, end: 20130208
  2. AMLODIPINE [Concomitant]
  3. ASPIRIN (ACETYLSALICYLIC ACID) [Concomitant]
  4. FUROSEMIDE [Concomitant]
  5. LISINOPRIL [Concomitant]
  6. PHOSLO (CALCIUM ACETATE) [Concomitant]
  7. RENALVITE (ASCORBIC ACID, BIOTIN, CALCIUM PANTOTHENATE, CYANOCOBALAMIN, FERROUS FUMARATE, FOLIC ACID, NICOTINAMIDE, PYRIDOXINE HYDROCHLORIDE, RIBOFLAVIN, THIAMINE HYDROCHLORIDE) [Concomitant]
  8. LANTUS (INSULIN GLARGINE) [Concomitant]
  9. LOMOTIL (ATROPINE SULFATE, DIPHENOXYLATE HYDROCHLORIDE) [Concomitant]
  10. TOPROL (METOPROLOL SUCCINATE) [Concomitant]
  11. ZYRTEC (CETIRIZINE HYDROCHLORIDE) [Concomitant]
  12. GABAPENTIN [Concomitant]
  13. ZEMPLAR (PARICALCITOL) [Concomitant]
  14. EPOGEN (EPOETIN ALFA) [Concomitant]

REACTIONS (4)
  - Oedema peripheral [None]
  - Burning sensation [None]
  - Pruritus [None]
  - Hypersensitivity [None]
